FAERS Safety Report 7985269-9 (Version None)
Quarter: 2011Q4

REPORT INFORMATION
  Report Type: 
  Country: None (occurrence: None)
  Receive Date: 20111216
  Receipt Date: 20111202
  Transmission Date: 20120403
  Serious: Yes (Other)
  Sender: FDA-Public Use
  Company Number: ES-ROCHE-1020002

PATIENT

DRUGS (1)
  1. ACTEMRA [Suspect]
     Indication: PRODUCT USED FOR UNKNOWN INDICATION
     Route: 042

REACTIONS (5)
  - NEUTROPENIA [None]
  - SQUAMOUS CELL CARCINOMA [None]
  - SEPTIC SHOCK [None]
  - INTRAOCULAR PRESSURE INCREASED [None]
  - ULCERATIVE KERATITIS [None]
